FAERS Safety Report 14701046 (Version 4)
Quarter: 2018Q2

REPORT INFORMATION
  Report Type: Report from Study
  Country: None (occurrence: US)
  Receive Date: 20180330
  Receipt Date: 20180531
  Transmission Date: 20180711
  Serious: Yes (Other)
  Sender: FDA-Public Use
  Company Number: US-ABBVIE-18K-163-2303991-00

PATIENT
  Age: 68 Year
  Sex: Male
  Weight: 93.98 kg

DRUGS (1)
  1. HUMIRA [Suspect]
     Active Substance: ADALIMUMAB
     Indication: PSORIASIS
     Route: 058
     Dates: start: 2013

REACTIONS (2)
  - Eye pruritus [Not Recovered/Not Resolved]
  - Limb traumatic amputation [Recovered/Resolved]

NARRATIVE: CASE EVENT DATE: 201803
